FAERS Safety Report 6234474-0 (Version None)
Quarter: 2009Q2

REPORT INFORMATION
  Report Type: 
  Country: None (occurrence: None)
  Receive Date: 20090618
  Receipt Date: 20081217
  Transmission Date: 20091009
  Serious: No
  Sender: FDA-Public Use
  Company Number: US-BRISTOL-MYERS SQUIBB COMPANY-14125421

PATIENT
  Age: 56 Year
  Sex: Female
  Weight: 70 kg

DRUGS (3)
  1. SINEMET [Suspect]
     Indication: PARKINSON'S DISEASE
     Dosage: PILLS FROM MERCK (JUN):NDC 0056-0650-68;LOT NO:U6927;EXP.DATE:MAY10.DUPONT(FEB):1 DF: 25/100MG
     Route: 065
     Dates: start: 20080101
  2. ENALAPRIL MALEATE [Concomitant]
  3. FOLTX [Concomitant]

REACTIONS (3)
  - DRUG INEFFECTIVE [None]
  - MUSCULOSKELETAL STIFFNESS [None]
  - PAIN [None]
